FAERS Safety Report 8902301 (Version 1)
Quarter: 2012Q4

REPORT INFORMATION
  Report Type: 
  Country: IN (occurrence: IN)
  Receive Date: 20121112
  Receipt Date: 20121112
  Transmission Date: 20130627
  Serious: Yes (Hospitalization)
  Sender: FDA-Public Use
  Company Number: IN-JNJFOC-20121103546

PATIENT
  Age: 63 Year
  Sex: Male

DRUGS (2)
  1. RIVAROXABAN [Suspect]
     Indication: THROMBOSIS PROPHYLAXIS
     Route: 065
  2. RIVAROXABAN [Suspect]
     Indication: KNEE ARTHROPLASTY
     Route: 065

REACTIONS (2)
  - Contusion [Recovered/Resolved]
  - Post procedural haemorrhage [Recovered/Resolved]
